FAERS Safety Report 8521863-4 (Version None)
Quarter: 2012Q3

REPORT INFORMATION
  Report Type: 
  Country: None (occurrence: None)
  Receive Date: 20120719
  Receipt Date: 20120523
  Transmission Date: 20120928
  Serious: No
  Sender: FDA-Public Use
  Company Number: US-BRISTOL-MYERS SQUIBB COMPANY-16581548

PATIENT
  Age: 61 Year
  Sex: Female
  Weight: 92 kg

DRUGS (2)
  1. YERVOY [Suspect]
     Indication: MALIGNANT MELANOMA
     Dosage: NO OF DOSE: 2
     Dates: start: 20120401
  2. TYLENOL + OXYCODONE [Suspect]
     Indication: HEADACHE

REACTIONS (3)
  - SOMNOLENCE [None]
  - FATIGUE [None]
  - HEADACHE [None]
